FAERS Safety Report 17166544 (Version 2)
Quarter: 2020Q1

REPORT INFORMATION
  Report Type: Spontaneous
  Country: US (occurrence: US)
  Receive Date: 20191217
  Receipt Date: 20200116
  Transmission Date: 20200409
  Serious: Yes (Other)
  Sender: FDA-Public Use
  Company Number: US-TEVA-2019-US-1153066

PATIENT
  Age: 11 Year
  Sex: Female

DRUGS (12)
  1. DOXORUBICIN [Suspect]
     Active Substance: DOXORUBICIN
     Indication: B-CELL LYMPHOMA STAGE III
     Dosage: RECEIVED TWO COURSES IN R-COPADM REGIMEN
     Route: 065
  2. CYTARABINE. [Suspect]
     Active Substance: CYTARABINE
     Indication: B-CELL LYMPHOMA STAGE III
     Dosage: RECEIVED TWO COURSES IN R-CYM REGIMEN
     Route: 065
  3. PREDNISONE. [Suspect]
     Active Substance: PREDNISONE
     Dosage: RECEIVED TWO COURSES IN R-COPADM REGIMEN
     Route: 065
  4. PREDNISONE. [Suspect]
     Active Substance: PREDNISONE
     Indication: B-CELL LYMPHOMA STAGE III
     Dosage: PART OF COP REGIMEN
     Route: 065
  5. METHOTREXATE. [Suspect]
     Active Substance: METHOTREXATE
     Indication: B-CELL LYMPHOMA STAGE III
     Dosage: RECEIVED TWO COURSES IN R-COPADM REGIMEN AT HIGH-DOSE
     Route: 065
  6. CYCLOPHOSPHAMIDE. [Suspect]
     Active Substance: CYCLOPHOSPHAMIDE
     Indication: B-CELL LYMPHOMA STAGE III
     Dosage: PART OF COP REGIMEN
     Route: 065
  7. VINCRISTINE [Suspect]
     Active Substance: VINCRISTINE
     Indication: B-CELL LYMPHOMA STAGE III
     Dosage: PART OF COP REGIMEN
     Route: 065
  8. VINCRISTINE [Suspect]
     Active Substance: VINCRISTINE
     Dosage: RECEIVED TWO COURSES IN R-COPADM REGIMEN
     Route: 065
  9. CYCLOPHOSPHAMIDE. [Suspect]
     Active Substance: CYCLOPHOSPHAMIDE
     Dosage: RECEIVED TWO COURSES IN R-COPADM REGIMEN
     Route: 065
  10. RITUXIMAB. [Suspect]
     Active Substance: RITUXIMAB
     Indication: B-CELL LYMPHOMA STAGE III
     Dosage: RECEIVED TWO COURSES IN R-COPADM REGIMEN
     Route: 065
  11. METHOTREXATE. [Suspect]
     Active Substance: METHOTREXATE
     Dosage: RECEIVED TWO COURSES OF HIGH DOSE METHOTREXATE IN R-CYM REGIMEN
     Route: 065
  12. RITUXIMAB. [Suspect]
     Active Substance: RITUXIMAB
     Dosage: RECEIVED TWO COURSES; PART OF R-CYM REGIMEN
     Route: 065

REACTIONS (1)
  - Thrombocytopenia [Recovered/Resolved]
